FAERS Safety Report 25178253 (Version 1)
Quarter: 2025Q2

REPORT INFORMATION
  Report Type: Spontaneous
  Country: RU (occurrence: RU)
  Receive Date: 20250409
  Receipt Date: 20250409
  Transmission Date: 20250716
  Serious: Yes (Other)
  Sender: ROCHE
  Company Number: RU-ROCHE-10000248387

PATIENT
  Age: 35 Year
  Sex: Female

DRUGS (6)
  1. VEMURAFENIB [Suspect]
     Active Substance: VEMURAFENIB
     Indication: Malignant melanoma
     Route: 065
     Dates: start: 20230813
  2. COBIMETINIB [Suspect]
     Active Substance: COBIMETINIB
     Indication: Malignant melanoma
     Route: 065
     Dates: start: 20230813
  3. DABRAFENIB [Concomitant]
     Active Substance: DABRAFENIB
     Indication: Malignant melanoma
     Dates: start: 20211225
  4. TRAMETINIB [Concomitant]
     Active Substance: TRAMETINIB
     Indication: Malignant melanoma
  5. IPILIMUMAB [Concomitant]
     Active Substance: IPILIMUMAB
     Indication: Malignant melanoma
     Dates: start: 20220421
  6. NIVOLUMAB [Concomitant]
     Active Substance: NIVOLUMAB
     Indication: Malignant melanoma
     Dates: start: 20220421

REACTIONS (4)
  - Metastases to central nervous system [Unknown]
  - Cerebral cyst [Unknown]
  - Neoplasm progression [Unknown]
  - Oedema [Unknown]
